FAERS Safety Report 22367107 (Version 1)
Quarter: 2023Q2

REPORT INFORMATION
  Report Type: Spontaneous
  Country: SE (occurrence: SE)
  Receive Date: 20230525
  Receipt Date: 20230525
  Transmission Date: 20230721
  Serious: Yes (Other)
  Sender: FDA-Public Use
  Company Number: SE-002147023-NVSC2023SE097154

PATIENT
  Age: 72 Year
  Sex: Male

DRUGS (5)
  1. PACLITAXEL [Suspect]
     Active Substance: PACLITAXEL
     Indication: Product used for unknown indication
     Dosage: UNK
     Route: 065
  2. MEKINIST [Suspect]
     Active Substance: TRAMETINIB DIMETHYL SULFOXIDE
     Indication: Thyroid cancer
     Dosage: UNK
     Route: 065
     Dates: start: 20230125
  3. MEKINIST [Suspect]
     Active Substance: TRAMETINIB DIMETHYL SULFOXIDE
     Dosage: 4 MG, QD, 2 MG, BID
     Route: 048
     Dates: start: 20230407
  4. TAFINLAR [Suspect]
     Active Substance: DABRAFENIB MESYLATE
     Indication: Thyroid cancer
     Dosage: UNK
     Route: 065
     Dates: start: 20230125
  5. TAFINLAR [Suspect]
     Active Substance: DABRAFENIB MESYLATE
     Dosage: 50 MILLIGRAM, 50 MG (3X2)
     Route: 048
     Dates: start: 20230407

REACTIONS (9)
  - Escherichia sepsis [Unknown]
  - Large intestine perforation [Unknown]
  - Intestinal perforation [Unknown]
  - Tracheal stenosis [Unknown]
  - Malignant neoplasm progression [Unknown]
  - Thyroid cancer [Unknown]
  - Flatulence [Unknown]
  - Infection [Unknown]
  - Abdominal pain [Unknown]

NARRATIVE: CASE EVENT DATE: 20230424
